FAERS Safety Report 5381209-X (Version None)
Quarter: 2007Q3

REPORT INFORMATION
  Report Type: 
  Country: None (occurrence: None)
  Receive Date: 20070706
  Receipt Date: 20070626
  Transmission Date: 20080115
  Serious: Yes (Other)
  Sender: FDA-Public Use
  Company Number: US-PFIZER INC-2007053344

PATIENT
  Sex: Male
  Weight: 77.1 kg

DRUGS (7)
  1. CHANTIX [Suspect]
     Indication: SMOKING CESSATION THERAPY
     Dates: start: 20070608, end: 20070626
  2. CHANTIX [Suspect]
     Indication: NICOTINE DEPENDENCE
  3. COMMIT [Concomitant]
  4. ALL OTHER NON-THERAPEUTIC PRODUCTS [Concomitant]
  5. LISINOPRIL [Concomitant]
  6. ASPIRIN [Concomitant]
  7. NICOTINE [Concomitant]
     Route: 062

REACTIONS (1)
  - ANTISOCIAL BEHAVIOUR [None]
